FAERS Safety Report 14019071 (Version 1)
Quarter: 2017Q3

REPORT INFORMATION
  Report Type: Spontaneous
  Country: FR (occurrence: FR)
  Receive Date: 20170928
  Receipt Date: 20170928
  Transmission Date: 20171128
  Serious: Yes (Other)
  Sender: FDA-Public Use
  Company Number: FR-009507513-1709FRA010857

PATIENT
  Age: 27 Year
  Sex: Female

DRUGS (1)
  1. NEXPLANON [Suspect]
     Active Substance: ETONOGESTREL
     Dosage: 1 DF, UNK, INSERTED IN LEFT ARM
     Route: 059
     Dates: start: 20160208, end: 20170224

REACTIONS (4)
  - Visual impairment [Not Recovered/Not Resolved]
  - Sudden visual loss [Not Recovered/Not Resolved]
  - Headache [Recovering/Resolving]
  - Eye pain [Unknown]

NARRATIVE: CASE EVENT DATE: 20160605
